FAERS Safety Report 9736967 (Version 1)
Quarter: 2013Q4

REPORT INFORMATION
  Report Type: Spontaneous
  Country: FR (occurrence: FR)
  Receive Date: 20131206
  Receipt Date: 20131206
  Transmission Date: 20140711
  Serious: Yes (Death, Hospitalization)
  Sender: FDA-Public Use
  Company Number: FR-ASTRAZENECA-2013SE88925

PATIENT
  Age: 16221 Day
  Sex: Female

DRUGS (9)
  1. INEXIUM [Suspect]
     Route: 048
     Dates: start: 20131108, end: 20131112
  2. IMMUGRIP [Suspect]
     Indication: INFLUENZA IMMUNISATION
     Route: 030
     Dates: start: 20131108, end: 20131108
  3. CARTREX [Suspect]
     Indication: ARTHRALGIA
     Route: 048
     Dates: start: 2012
  4. CARTREX [Suspect]
     Indication: ARTHRALGIA
     Route: 048
     Dates: start: 20131108, end: 20131112
  5. VENTOLINE [Concomitant]
     Indication: ASTHMA
  6. XYZALL [Concomitant]
     Indication: ASTHMA
  7. SYMBICORT [Concomitant]
     Indication: ASTHMA
     Dosage: 400/12 UG, ONE PUFF TWICE DAILY
     Route: 055
  8. SINGULAIR [Concomitant]
     Indication: ASTHMA
  9. ART [Concomitant]

REACTIONS (1)
  - Cardiac arrest [Fatal]
